FAERS Safety Report 5939505-0 (Version None)
Quarter: 2008Q4

REPORT INFORMATION
  Report Type: 
  Country: None (occurrence: None)
  Receive Date: 20081030
  Receipt Date: 20081026
  Transmission Date: 20090506
  Serious: Yes (Other)
  Sender: FDA-Public Use
  Company Number: 2300460000-2008-8168

PATIENT

DRUGS (1)
  1. PURELL, INSTANT HAND SANITIZER [Suspect]

REACTIONS (2)
  - ACCIDENTAL EXPOSURE [None]
  - DEVICE MALFUNCTION [None]
